FAERS Safety Report 7035440-8 (Version None)
Quarter: 2010Q4

REPORT INFORMATION
  Report Type: 
  Country: None (occurrence: None)
  Receive Date: 20101008
  Receipt Date: 20100927
  Transmission Date: 20110411
  Serious: Yes (Death)
  Sender: FDA-Public Use
  Company Number: JP-PFIZER INC-2010105490

PATIENT
  Age: 88 Year
  Sex: Male
  Weight: 47.5 kg

DRUGS (9)
  1. ZOLOFT [Suspect]
     Indication: DEPRESSION
     Dosage: 50 MG, 1X/DAY
     Route: 048
     Dates: start: 20100223, end: 20100806
  2. CELECOXIB [Concomitant]
     Indication: PAIN
     Dosage: 100 MG, 2X/DAY
     Route: 048
     Dates: start: 20100602
  3. PARIET [Concomitant]
     Dosage: 10 MG, 1X/DAY
     Route: 048
     Dates: start: 20030913
  4. CRESTOR [Concomitant]
     Dosage: 2.5 MG, 1X/DAY
     Route: 048
     Dates: start: 20090331
  5. PANALGINE [Concomitant]
     Indication: THROMBOSIS
     Dosage: 100 MG, 1X/DAY
     Route: 048
     Dates: start: 20030801
  6. ARICEPT [Concomitant]
     Indication: DEMENTIA
     Dosage: 5 MG, 1X/DAY
     Route: 048
     Dates: start: 20090331
  7. CERCINE [Concomitant]
     Indication: ANXIETY
     Dosage: 2 MG, 3X/DAY
     Route: 048
     Dates: start: 20100803
  8. GANATON [Concomitant]
     Dosage: 50 MG, 3X/DAY
     Dates: start: 20090331
  9. GLYSENNID [Concomitant]
     Indication: CONSTIPATION
     Dosage: 24 MG, 1X/DAY
     Dates: start: 20030801

REACTIONS (3)
  - BREAST PAIN [None]
  - BREAST SWELLING [None]
  - INTERSTITIAL LUNG DISEASE [None]
